FAERS Safety Report 19176866 (Version 1)
Quarter: 2021Q2

REPORT INFORMATION
  Report Type: Other
  Country: GB (occurrence: GB)
  Receive Date: 20210424
  Receipt Date: 20210424
  Transmission Date: 20210717
  Serious: No
  Sender: FDA-Public Use
  Company Number: GB-LUPIN PHARMACEUTICALS INC.-2021-04977

PATIENT
  Age: 32 Year
  Sex: Male

DRUGS (1)
  1. SERTRALINE HYDROCHLORIDE TABLETS [Suspect]
     Active Substance: SERTRALINE HYDROCHLORIDE
     Indication: STRESS FRACTURE
     Dosage: 56 DOSAGE FORM
     Route: 048
     Dates: start: 20170103

REACTIONS (2)
  - Overdose [Unknown]
  - Somnolence [Recovered/Resolved with Sequelae]
